FAERS Safety Report 25046791 (Version 1)
Quarter: 2025Q1

REPORT INFORMATION
  Report Type: Other
  Country: IN (occurrence: IN)
  Receive Date: 20250306
  Receipt Date: 20250306
  Transmission Date: 20250408
  Serious: Yes (Other)
  Sender: APPCO PHARMA LLC
  Company Number: IN-Appco Pharma LLC-2172361

PATIENT
  Age: 19 Year
  Sex: Male

DRUGS (1)
  1. FLUOXETINE [Suspect]
     Active Substance: FLUOXETINE HYDROCHLORIDE
     Indication: Obsessive-compulsive disorder
     Dates: start: 202308

REACTIONS (1)
  - Focal dyscognitive seizures [Unknown]

NARRATIVE: CASE EVENT DATE: 20230801
